FAERS Safety Report 8968188 (Version 2)
Quarter: 2013Q2

REPORT INFORMATION
  Report Type: Report from Study
  Country: GR (occurrence: GR)
  Receive Date: 20121217
  Receipt Date: 20130404
  Transmission Date: 20140414
  Serious: Yes (Hospitalization, Other)
  Sender: FDA-Public Use
  Company Number: GR-ABBOTT-12P-066-1021630-00

PATIENT
  Age: 67 Year
  Sex: Male
  Weight: 76 kg

DRUGS (9)
  1. ZEMPLAR [Suspect]
     Indication: RENAL FAILURE CHRONIC
     Dosage: 5 MCG X3
     Route: 042
     Dates: start: 20120501
  2. ZEMPLAR [Suspect]
     Indication: HAEMODIALYSIS
  3. ZEMPLAR [Suspect]
     Indication: HYPERPARATHYROIDISM SECONDARY
  4. CARVEDILOL [Concomitant]
     Indication: HYPERTENSION
     Dosage: 3.125 X 2
     Dates: start: 20111005
  5. OMNIC TOCAS [Concomitant]
     Indication: BENIGN PROSTATIC HYPERPLASIA
     Dosage: 1X1
     Route: 048
     Dates: start: 20100308
  6. ATORVASTATIN [Concomitant]
     Indication: HYPERLIPIDAEMIA
     Dosage: 10 MGX1
     Route: 048
     Dates: start: 2010
  7. OMACOR [Concomitant]
     Indication: HYPERLIPIDAEMIA
     Dosage: 2X1
     Route: 048
     Dates: start: 2010
  8. SEVELAMER [Concomitant]
     Indication: HYPERPHOSPHATAEMIA
     Dosage: 1600 MG X 3
     Route: 048
     Dates: start: 2009
  9. LANTHANIUM [Concomitant]
     Indication: HYPERPHOSPHATAEMIA
     Dosage: 1500 MG X 3
     Route: 048
     Dates: start: 2010

REACTIONS (2)
  - Peripheral ischaemia [Recovered/Resolved with Sequelae]
  - Dry gangrene [Recovered/Resolved with Sequelae]
